FAERS Safety Report 23724112 (Version 1)
Quarter: 2024Q2

REPORT INFORMATION
  Report Type: Spontaneous
  Country: US (occurrence: None)
  Receive Date: 20240409
  Receipt Date: 20240409
  Transmission Date: 20240716
  Serious: No
  Sender: FDA-Public Use
  Company Number: 2024A073965

PATIENT
  Sex: Male

DRUGS (1)
  1. TAGRISSO [Suspect]
     Active Substance: OSIMERTINIB
     Route: 048

REACTIONS (6)
  - Stomatitis [Unknown]
  - Rash [Unknown]
  - Diarrhoea [Unknown]
  - Muscle disorder [Unknown]
  - Depression [Unknown]
  - Visual impairment [Unknown]
